FAERS Safety Report 13261182 (Version 2)
Quarter: 2017Q1

REPORT INFORMATION
  Report Type: Spontaneous
  Country: JP (occurrence: JP)
  Receive Date: 20170222
  Receipt Date: 20170313
  Transmission Date: 20170428
  Serious: Yes (Other)
  Sender: FDA-Public Use
  Company Number: JP-TEVA-741923ISR

PATIENT
  Age: 38 Year
  Sex: Female
  Weight: 75.5 kg

DRUGS (11)
  1. CYCLOPHOSPHAMIDE. [Suspect]
     Active Substance: CYCLOPHOSPHAMIDE
     Dosage: 900 MG/M2 DAY 2 (DOSE-ADJUSTED EPOCH-R) EVERY 21 DAYS
     Route: 065
  2. RITUXIMAB [Suspect]
     Active Substance: RITUXIMAB
     Dosage: 375 MG/M2 DAY 6 (DOSE-ADJUSTED EPOCH-R)
     Route: 065
  3. VINCRISTINE [Suspect]
     Active Substance: VINCRISTINE
     Indication: B-CELL LYMPHOMA
     Dosage: 2 MG/BODY (RCHOP)
     Route: 065
  4. PREDNISOLONE. [Suspect]
     Active Substance: PREDNISOLONE
     Indication: B-CELL LYMPHOMA
     Dosage: 100 MG/BODY DAY2-6 (RCHOP)
     Route: 065
  5. PREDNISOLONE. [Suspect]
     Active Substance: PREDNISOLONE
     Dosage: 200 MG/BODY DAY 1-5 (DOSE-ADJUSTED EPOCH-R ) EVERY 21 DAYS
     Route: 065
  6. CYCLOPHOSPHAMIDE. [Suspect]
     Active Substance: CYCLOPHOSPHAMIDE
     Indication: B-CELL LYMPHOMA
     Dosage: 750 MG/M2 DAY 2 (RCHOP)
     Route: 065
  7. DOXORUBICIN [Suspect]
     Active Substance: DOXORUBICIN
     Indication: B-CELL LYMPHOMA
     Dosage: 50 MG/M2 DAY 2 (RCHOP)
     Route: 065
  8. ETOPOSIDE. [Suspect]
     Active Substance: ETOPOSIDE
     Indication: B-CELL LYMPHOMA
     Dosage: 12 MG/M2 DOSE-ADJUSTED EPOCH-R
     Route: 065
  9. DOXORUBICIN [Suspect]
     Active Substance: DOXORUBICIN
     Dosage: 10 MG/M2 24-HOUR CONTINUOUS DRIP DAY 1-4(DOSE-ADJUSTED EPOCH-R) EVERY 21 DAYS
     Route: 065
  10. VINCRISTINE [Suspect]
     Active Substance: VINCRISTINE
     Dosage: 0.4 MG/M 2
  11. RITUXIMAB [Suspect]
     Active Substance: RITUXIMAB
     Indication: B-CELL LYMPHOMA
     Dosage: 375 MG/M2 DAY 1 (RCHOP)
     Route: 065

REACTIONS (2)
  - Drug resistance [Unknown]
  - Haematotoxicity [Unknown]
